FAERS Safety Report 6836267-X (Version None)
Quarter: 2010Q3

REPORT INFORMATION
  Report Type: 
  Country: None (occurrence: None)
  Receive Date: 20100713
  Receipt Date: 20091214
  Transmission Date: 20110219
  Serious: No
  Sender: FDA-Public Use
  Company Number: US-TYCO HEALTHCARE/MALLINCKRODT-T200902320

PATIENT
  Sex: Female
  Weight: 72.562 kg

DRUGS (6)
  1. OXYCODONE HCL [Suspect]
     Indication: PAIN
     Dosage: 15 MG, SINGLE
     Route: 048
     Dates: start: 20091208, end: 20091208
  2. AMOXICILLIN [Concomitant]
     Indication: BRONCHITIS
     Dosage: 500 MG, TID
     Route: 048
  3. AMOXICILLIN [Concomitant]
     Indication: SINUSITIS
  4. METOPROLOL [Concomitant]
     Indication: HEART RATE INCREASED
     Dosage: 50 MG, BID
     Route: 048
  5. METHOCARBAMOL [Concomitant]
     Indication: MUSCLE RELAXANT THERAPY
     Dosage: 500 MG, TID
     Route: 048
  6. TRIAMTERENE AND HYDROCHLOROTHIAZIDE [Concomitant]
     Indication: ABDOMINAL DISTENSION
     Dosage: 37.5 MG, BID
     Route: 048

REACTIONS (6)
  - BEDRIDDEN [None]
  - CHILLS [None]
  - COLD SWEAT [None]
  - DIZZINESS [None]
  - NAUSEA [None]
  - VOMITING [None]
